FAERS Safety Report 5705252-3 (Version None)
Quarter: 2008Q2

REPORT INFORMATION
  Report Type: 
  Country: None (occurrence: None)
  Receive Date: 20080410
  Receipt Date: 20080403
  Transmission Date: 20081010
  Serious: Yes (Hospitalization)
  Sender: FDA-Public Use
  Company Number: SPV1-2008-00748

PATIENT
  Age: 80 Year
  Sex: Male
  Weight: 85 kg

DRUGS (8)
  1. ANAGRELIDE HYDROCHLORIDE [Suspect]
     Indication: ESSENTIAL THROMBOCYTHAEMIA
     Dosage: 1 MG, DAILY
     Dates: start: 20071022, end: 20080202
  2. ASPEGIC 1000 [Concomitant]
  3. BISOPROLOL FUMARATE [Concomitant]
  4. IRBESARTAN [Concomitant]
  5. AMLODIPINE BESYLATE [Concomitant]
  6. ATORVASTATIN CALCIUM [Concomitant]
  7. MECIR (TAMSULOSIN HYDROCHLORIDE) [Concomitant]
  8. HYPERIUM (RILMENIDINE) [Concomitant]

REACTIONS (1)
  - ACUTE PULMONARY OEDEMA [None]
